FAERS Safety Report 5283620-4 (Version None)
Quarter: 2007Q1

REPORT INFORMATION
  Report Type: 
  Country: None (occurrence: None)
  Receive Date: 20070329
  Receipt Date: 20070329
  Transmission Date: 20070707
  Serious: Yes (Disabling, Other)
  Sender: FDA-Public Use
  Company Number: None

PATIENT
  Age: 17 Year
  Sex: Male
  Weight: 113.3993 kg

DRUGS (1)
  1. MINOCYCLINE HCL [Suspect]
     Indication: ACNE
     Dosage: ONE CAPSULE TWICE DAILY PO
     Route: 048
     Dates: start: 20070301, end: 20070312

REACTIONS (3)
  - BENIGN INTRACRANIAL HYPERTENSION [None]
  - CEREBROSPINAL FLUID RETENTION [None]
  - HEADACHE [None]
